FAERS Safety Report 5865764-9 (Version None)
Quarter: 2008Q3

REPORT INFORMATION
  Report Type: 
  Country: None (occurrence: None)
  Receive Date: 20080829
  Receipt Date: 20080826
  Transmission Date: 20090109
  Serious: Yes (Death, Hospitalization, Other)
  Sender: FDA-Public Use
  Company Number: PHBS2002TR07220

PATIENT
  Age: 46 Year
  Sex: Male
  Weight: 64 kg

DRUGS (10)
  1. NEORAL [Suspect]
     Indication: RENAL TRANSPLANT
     Dosage: 350 MG/D
     Route: 048
     Dates: start: 20020114, end: 20020419
  2. NEORAL [Suspect]
     Dosage: 4 MG/KG/DAY
  3. MYCOPHENOLATE MOFETIL [Suspect]
     Indication: RENAL TRANSPLANT
     Dosage: 1000 MG/D
     Route: 065
     Dates: start: 20020419, end: 20020609
  4. MYCOPHENOLATE MOFETIL [Suspect]
     Dosage: 500 MG, BID
     Route: 065
  5. PREDNISONE TAB [Suspect]
     Indication: RENAL TRANSPLANT
     Dosage: 16 MG/D
     Route: 065
     Dates: start: 20020109
  6. PREDNISONE TAB [Suspect]
     Dosage: 12 MG/DAY
     Route: 065
  7. AZATHIOPRINE [Concomitant]
     Indication: RENAL TRANSPLANT
     Dosage: 160 MG/D
     Route: 065
     Dates: start: 20020109, end: 20020419
  8. ACYCLOVIR [Concomitant]
     Indication: PROPHYLAXIS
  9. FLUCONAZOLE [Concomitant]
     Indication: PROPHYLAXIS
  10. SULFAMETHOXAZOLE AND TRIMETHOPRIM [Concomitant]
     Indication: PROPHYLAXIS

REACTIONS (11)
  - ASPERGILLOSIS [None]
  - CENTRAL NERVOUS SYSTEM LESION [None]
  - CYTOMEGALOVIRUS INFECTION [None]
  - HEADACHE [None]
  - LOSS OF CONSCIOUSNESS [None]
  - LUNG DISORDER [None]
  - NECROTISING RETINITIS [None]
  - PLEURAL EFFUSION [None]
  - SUBARACHNOID HAEMORRHAGE [None]
  - UVEITIS [None]
  - VISUAL IMPAIRMENT [None]
